FAERS Safety Report 4778282-6 (Version None)
Quarter: 2005Q3

REPORT INFORMATION
  Report Type: 
  Country: None (occurrence: None)
  Receive Date: 20050926
  Receipt Date: 20041202
  Transmission Date: 20060218
  Serious: Yes (Other)
  Sender: FDA-Public Use
  Company Number: US-BRISTOL-MYERS SQUIBB COMPANY-12783429

PATIENT
  Age: 46 Year
  Sex: Female

DRUGS (12)
  1. STADOL [Suspect]
     Dates: start: 19950101, end: 19980201
  2. BUTALBITAL ACETAMINOPHEN AND CAFFEINE [Concomitant]
  3. DIAZEPAM [Concomitant]
  4. LEVOTHYROXINE SODIUM [Concomitant]
  5. HYDROCODONE [Concomitant]
  6. LORAZEPAM [Concomitant]
  7. GUAIFENESIN [Concomitant]
  8. ALPRAZOLAM (GEN) [Concomitant]
  9. TRAMADOL HCL [Concomitant]
  10. VERAPAMIL HCL [Concomitant]
  11. PROCHLORPERAZINE MALEATE [Concomitant]
  12. NAPROXEN [Concomitant]

REACTIONS (1)
  - DEPENDENCE [None]
